FAERS Safety Report 7867577-5 (Version None)
Quarter: 2011Q4

REPORT INFORMATION
  Report Type: 
  Country: None (occurrence: None)
  Receive Date: 20111028
  Receipt Date: 20111024
  Transmission Date: 20120403
  Serious: Yes (Death, Hospitalization)
  Sender: FDA-Public Use
  Company Number: PHEH2011US03616

PATIENT
  Sex: Male

DRUGS (1)
  1. AFINITOR [Suspect]
     Indication: NEOPLASM MALIGNANT
     Dosage: 10 MG, DAILY
     Route: 048
     Dates: start: 20110727

REACTIONS (5)
  - HYPERGLYCAEMIA [None]
  - DEATH [None]
  - ASPIRATION PLEURAL CAVITY [None]
  - FALL [None]
  - OEDEMA PERIPHERAL [None]
